FAERS Safety Report 14412911 (Version 5)
Quarter: 2024Q3

REPORT INFORMATION
  Report Type: Spontaneous
  Country: ES (occurrence: ES)
  Receive Date: 20180119
  Receipt Date: 20240816
  Transmission Date: 20241017
  Serious: Yes (Other)
  Sender: ABBVIE
  Company Number: ES-PFIZER INC-2017532974

PATIENT
  Age: 60 Year
  Sex: Male

DRUGS (2)
  1. ADALIMUMAB [Suspect]
     Active Substance: ADALIMUMAB
     Indication: Inflammatory bowel disease
     Route: 058
  2. MESALAMINE [Suspect]
     Active Substance: MESALAMINE
     Indication: Inflammatory bowel disease
     Route: 065

REACTIONS (4)
  - Small intestinal obstruction [Recovered/Resolved]
  - Fistula [Recovered/Resolved]
  - Therapeutic product effect incomplete [Unknown]
  - Perforation [Recovered/Resolved]

NARRATIVE: CASE EVENT DATE: 20141001
